FAERS Safety Report 20090759 (Version 7)
Quarter: 2022Q1

REPORT INFORMATION
  Report Type: Report from Study
  Country: KR (occurrence: KR)
  Receive Date: 20211119
  Receipt Date: 20220128
  Transmission Date: 20220423
  Serious: Yes (Death)
  Sender: FDA-Public Use
  Company Number: KR-SEATTLE GENETICS-2021SGN05876

PATIENT
  Age: 79 Year
  Sex: Male
  Weight: 51 kg

DRUGS (7)
  1. ENFORTUMAB VEDOTIN [Suspect]
     Active Substance: ENFORTUMAB VEDOTIN
     Indication: Transitional cell carcinoma
     Dosage: 1.25 MG/KG, EVERY 3 WEEKS (ON DAY 1 AND 8 OF EACH 3 WEEK CYCLE)
     Route: 042
     Dates: start: 20210719, end: 20211012
  2. PEMBROLIZUMAB [Suspect]
     Active Substance: PEMBROLIZUMAB
     Indication: Transitional cell carcinoma
     Route: 042
     Dates: start: 20210719, end: 20211012
  3. Lacticare hc [Concomitant]
     Indication: Pruritus
     Dosage: UNK UNK, UNKNOWN FREQ.
     Route: 065
     Dates: start: 20210726, end: 20211026
  4. LAFUTIDINE [Concomitant]
     Active Substance: LAFUTIDINE
     Indication: Gastritis prophylaxis
     Dosage: 10 MG, TWICE DAILY (BID)
     Route: 065
     Dates: start: 20210803, end: 20211108
  5. LEVOTHYROXINE SODIUM [Concomitant]
     Active Substance: LEVOTHYROXINE SODIUM
     Indication: Hypothyroidism
     Route: 065
     Dates: start: 20211001, end: 20211108
  6. MEGACE F [Concomitant]
     Indication: Prophylaxis
     Dosage: 0.625 G, UNKNOWN FREQ.
     Route: 065
     Dates: start: 20211001, end: 20211108
  7. FREAMINE III NOS [Concomitant]
     Active Substance: AMINO ACIDS
     Indication: Weight decreased
     Route: 065
     Dates: start: 20211102, end: 20211102

REACTIONS (1)
  - Asthenia [Fatal]

NARRATIVE: CASE EVENT DATE: 20211109
